FAERS Safety Report 11852374 (Version 1)
Quarter: 2015Q4

REPORT INFORMATION
  Report Type: Spontaneous
  Country: US (occurrence: US)
  Receive Date: 20151218
  Receipt Date: 20151218
  Transmission Date: 20160305
  Serious: Yes (Other)
  Sender: FDA-Public Use
  Company Number: US-LPDUSPRD-20151018

PATIENT
  Age: 79 Year
  Sex: Female

DRUGS (1)
  1. VENOFER [Suspect]
     Active Substance: IRON SUCROSE
     Dosage: 500 MG OVER 3. 5 HOURS
     Route: 042

REACTIONS (3)
  - Unresponsive to stimuli [Unknown]
  - Hypotension [Unknown]
  - Syncope [Unknown]
